FAERS Safety Report 4993586-X (Version None)
Quarter: 2006Q2

REPORT INFORMATION
  Report Type: 
  Country: None (occurrence: None)
  Receive Date: 20060505
  Receipt Date: 20020807
  Transmission Date: 20061013
  Serious: Yes (Hospitalization)
  Sender: FDA-Public Use
  Company Number: US-BRISTOL-MYERS SQUIBB COMPANY-11988425

PATIENT
  Age: 63 Year
  Sex: Female

DRUGS (7)
  1. PARAPLATIN [Suspect]
     Route: 042
     Dates: start: 19931123, end: 19940426
  2. VM-26 [Suspect]
     Route: 042
  3. ENDOXAN-ASTA [Suspect]
     Route: 042
     Dates: start: 19931123, end: 19940426
  4. METHOTREXATE [Suspect]
     Route: 042
  5. ONCOVIN [Suspect]
     Route: 042
     Dates: start: 19931123, end: 19940426
  6. FLUOROURACIL [Suspect]
     Route: 042
  7. RADIATION THERAPY [Concomitant]

REACTIONS (4)
  - ACUTE MYELOID LEUKAEMIA [None]
  - ANAEMIA [None]
  - PANCYTOPENIA [None]
  - PETECHIAE [None]
